FAERS Safety Report 11471791 (Version 1)
Quarter: 2015Q3

REPORT INFORMATION
  Report Type: Spontaneous
  Country: IT (occurrence: IT)
  Receive Date: 20150908
  Receipt Date: 20150908
  Transmission Date: 20151125
  Serious: Yes (Other)
  Sender: FDA-Public Use
  Company Number: IT-ELI_LILLY_AND_COMPANY-IT201509000670

PATIENT
  Age: 31 Year
  Sex: Female

DRUGS (4)
  1. HUMALOG [Suspect]
     Active Substance: INSULIN LISPRO
     Indication: DIABETES MELLITUS
     Dosage: 7 IU, EACH MORNING
     Route: 058
     Dates: start: 20150101, end: 20150817
  2. HUMALOG [Suspect]
     Active Substance: INSULIN LISPRO
     Dosage: 12 IU, QD
     Route: 058
     Dates: start: 20150101, end: 20150817
  3. LEVEMIR [Suspect]
     Active Substance: INSULIN DETEMIR
     Indication: DIABETES MELLITUS
     Dosage: 16 IU, QD
     Route: 058
     Dates: start: 20150101, end: 20150817
  4. HUMALOG [Suspect]
     Active Substance: INSULIN LISPRO
     Dosage: 9 IU, EACH EVENING
     Route: 058
     Dates: start: 20150101, end: 20150817

REACTIONS (4)
  - Hypoglycaemia [Recovering/Resolving]
  - Injury [Recovering/Resolving]
  - Wound [Recovering/Resolving]
  - Fall [Unknown]

NARRATIVE: CASE EVENT DATE: 20150817
